FAERS Safety Report 8401163-3 (Version None)
Quarter: 2012Q2

REPORT INFORMATION
  Report Type: 
  Country: None (occurrence: None)
  Receive Date: 20120601
  Receipt Date: 20120523
  Transmission Date: 20120825
  Serious: Yes (Hospitalization)
  Sender: FDA-Public Use
  Company Number: DE-VERTEX PHARMACEUTICALS INC.-000000000000000300

PATIENT
  Sex: Female

DRUGS (3)
  1. PEG INTERFERON [Concomitant]
     Indication: PRODUCT USED FOR UNKNOWN INDICATION
     Dates: start: 20120127, end: 20120207
  2. INCIVO (TELAPREVIR) [Suspect]
     Indication: PRODUCT USED FOR UNKNOWN INDICATION
     Dosage: DOSAGE FORM: TABLET
     Route: 048
     Dates: start: 20120128, end: 20120205
  3. REBETOL [Concomitant]
     Indication: PRODUCT USED FOR UNKNOWN INDICATION
     Route: 048
     Dates: start: 20120127, end: 20120207

REACTIONS (6)
  - SYNCOPE [None]
  - VOMITING [None]
  - NAUSEA [None]
  - THROMBOCYTOPENIA [None]
  - PRESYNCOPE [None]
  - LEUKOPENIA [None]
